FAERS Safety Report 25535063 (Version 2)
Quarter: 2025Q4

REPORT INFORMATION
  Report Type: Spontaneous
  Country: US (occurrence: US)
  Receive Date: 20250709
  Receipt Date: 20251003
  Transmission Date: 20260118
  Serious: Yes (Other)
  Sender: MERCK SHARP & DOHME LLC
  Company Number: US-009507513-2294438

PATIENT
  Age: 75 Year
  Sex: Female

DRUGS (1)
  1. KEYTRUDA [Suspect]
     Active Substance: PEMBROLIZUMAB

REACTIONS (16)
  - Autoimmune disorder [Not Recovered/Not Resolved]
  - Diplopia [Not Recovered/Not Resolved]
  - Rash [Not Recovered/Not Resolved]
  - Vision blurred [Not Recovered/Not Resolved]
  - Alopecia [Not Recovered/Not Resolved]
  - Peripheral swelling [Unknown]
  - Pruritus [Not Recovered/Not Resolved]
  - Joint swelling [Unknown]
  - Decreased appetite [Not Recovered/Not Resolved]
  - Diarrhoea [Unknown]
  - Abdominal distension [Not Recovered/Not Resolved]
  - Muscle spasms [Unknown]
  - Hyperhidrosis [Not Recovered/Not Resolved]
  - Paraesthesia [Unknown]
  - Eye pain [Not Recovered/Not Resolved]
  - Exposure to body fluid [Not Recovered/Not Resolved]

NARRATIVE: CASE EVENT DATE: 20240101
